FAERS Safety Report 13653245 (Version 1)
Quarter: 2017Q2

REPORT INFORMATION
  Report Type: Spontaneous
  Country: US (occurrence: US)
  Receive Date: 20170614
  Receipt Date: 20170614
  Transmission Date: 20170830
  Serious: No
  Sender: FDA-Public Use
  Company Number: US-ROCHE-1553918

PATIENT
  Age: 49 Year
  Sex: Female

DRUGS (17)
  1. ADVIL [Concomitant]
     Active Substance: IBUPROFEN
     Route: 048
     Dates: start: 20141023
  2. TAXOTERE [Concomitant]
     Active Substance: DOCETAXEL
  3. TAMOXIFEN [Concomitant]
     Active Substance: TAMOXIFEN
  4. MIRTAZAPINE. [Concomitant]
     Active Substance: MIRTAZAPINE
     Route: 048
     Dates: start: 20150117
  5. CYANOCOBALAMIN. [Concomitant]
     Active Substance: CYANOCOBALAMIN
     Route: 030
     Dates: start: 20141202
  6. EXEMESTANE. [Concomitant]
     Active Substance: EXEMESTANE
  7. PALBOCICLIB [Concomitant]
     Active Substance: PALBOCICLIB
     Dosage: ONCE A DAY AT SAME TIME EACH DAY FOR 21 DAYS FOLLOWED BY 7 DAY OFF (28 DAY CYCLE)
     Route: 048
  8. ADRIAMYCIN [Concomitant]
     Active Substance: DOXORUBICIN HYDROCHLORIDE
  9. AFINITOR [Concomitant]
     Active Substance: EVEROLIMUS
     Dosage: WITH EXEMESTANE; RESTARTED AGAIN IN /OCT/2014
     Route: 065
  10. GABAPENTIN. [Concomitant]
     Active Substance: GABAPENTIN
     Route: 048
     Dates: start: 20150111
  11. LETROZOLE. [Concomitant]
     Active Substance: LETROZOLE
     Route: 048
     Dates: start: 20141121
  12. XELODA [Suspect]
     Active Substance: CAPECITABINE
     Indication: BREAST CANCER
     Route: 065
  13. XGEVA [Concomitant]
     Active Substance: DENOSUMAB
     Route: 058
     Dates: start: 20130112
  14. CYTOXAN [Concomitant]
     Active Substance: CYCLOPHOSPHAMIDE
  15. FASLODEX [Concomitant]
     Active Substance: FULVESTRANT
  16. MELATONIN [Concomitant]
     Active Substance: MELATONIN
     Dosage: 112MG-3MG
     Route: 048
     Dates: start: 20110601
  17. ASPIRIN. [Concomitant]
     Active Substance: ASPIRIN
     Route: 048
     Dates: start: 20141023

REACTIONS (4)
  - Neck pain [Unknown]
  - Chest pain [Unknown]
  - Headache [Unknown]
  - Weight decreased [Unknown]

NARRATIVE: CASE EVENT DATE: 201409
